FAERS Safety Report 4507879-3 (Version None)
Quarter: 2004Q4

REPORT INFORMATION
  Report Type: 
  Country: None (occurrence: None)
  Receive Date: 20041123
  Receipt Date: 20041116
  Transmission Date: 20050328
  Serious: Yes (Other)
  Sender: FDA-Public Use
  Company Number: US-MERCK-0411USA02733

PATIENT
  Age: 54 Year
  Sex: Male

DRUGS (6)
  1. ZOCOR [Suspect]
     Indication: LOW DENSITY LIPOPROTEIN INCREASED
     Route: 048
     Dates: start: 20020101
  2. EXTRA STRENGTH TYLENOL [Suspect]
     Indication: ARTHRALGIA
     Route: 048
     Dates: start: 20041008, end: 20041021
  3. WARFARIN [Concomitant]
     Route: 065
     Dates: start: 19990101
  4. WARFARIN [Concomitant]
     Route: 065
     Dates: start: 19990101
  5. ZANTAC [Concomitant]
     Route: 065
     Dates: start: 20020101
  6. INFLUENZA VIRUS VACCINE (UNSPECIFIED) [Concomitant]
     Route: 065
     Dates: start: 20041014, end: 20041014

REACTIONS (9)
  - CHOLECYSTITIS [None]
  - COOMBS DIRECT TEST POSITIVE [None]
  - COOMBS INDIRECT TEST POSITIVE [None]
  - DRUG INTERACTION [None]
  - GALLBLADDER DISORDER [None]
  - GALLBLADDER ENLARGEMENT [None]
  - IDIOPATHIC THROMBOCYTOPENIC PURPURA [None]
  - INFECTION [None]
  - JAUNDICE [None]
